FAERS Safety Report 23455633 (Version 4)
Quarter: 2024Q2

REPORT INFORMATION
  Report Type: Spontaneous
  Country: US (occurrence: US)
  Receive Date: 20240130
  Receipt Date: 20240506
  Transmission Date: 20240716
  Serious: No
  Sender: FDA-Public Use
  Company Number: US-AMGEN-USASP2024018394

PATIENT
  Age: 83 Year
  Sex: Female

DRUGS (2)
  1. REPATHA [Suspect]
     Active Substance: EVOLOCUMAB
     Indication: Hypercholesterolaemia
     Dosage: 420 MILLIGRAM, QMO
     Route: 058
  2. REPATHA [Suspect]
     Active Substance: EVOLOCUMAB
     Dosage: 420 MILLIGRAM, QMO
     Route: 058

REACTIONS (2)
  - Wrong technique in product usage process [Unknown]
  - Drug dose omission by device [Unknown]

NARRATIVE: CASE EVENT DATE: 20240125
